FAERS Safety Report 7280662-4 (Version None)
Quarter: 2011Q1

REPORT INFORMATION
  Report Type: 
  Country: None (occurrence: None)
  Receive Date: 20110203
  Receipt Date: 20110203
  Transmission Date: 20110831
  Serious: Yes (Hospitalization)
  Sender: FDA-Public Use
  Company Number: None

PATIENT
  Sex: Female
  Weight: 87.9978 kg

DRUGS (12)
  1. VITAMIN B COMPLEX CAP [Concomitant]
  2. FASLODEX [Suspect]
     Indication: BREAST CANCER METASTATIC
     Dosage: 250 MG Q28D IM
     Route: 030
     Dates: start: 20101221, end: 20101221
  3. ATENOLOL [Concomitant]
  4. MULTI-VITAMIN [Concomitant]
  5. EXEMESTANE [Suspect]
     Indication: BREAST CANCER METASTATIC
     Dosage: 25 MG DAILY PO
     Route: 048
     Dates: start: 20101221, end: 20110117
  6. LIPITOR [Concomitant]
  7. POTASSIUM CHLORIDE [Concomitant]
  8. ZOLOFT [Concomitant]
  9. ADVIL [Concomitant]
  10. CALCIUM + D [Concomitant]
  11. FLUTICASONE PROPIONATE [Concomitant]
  12. LOSARTAN POTASSIUM AND HYDROCHLOROTHIAZIDE [Concomitant]

REACTIONS (6)
  - VIRAL INFECTION [None]
  - HYPOPHAGIA [None]
  - HYPOKALAEMIA [None]
  - GASTROINTESTINAL DISORDER [None]
  - FALL [None]
  - SYNCOPE [None]
